FAERS Safety Report 7327766-5 (Version None)
Quarter: 2011Q1

REPORT INFORMATION
  Report Type: 
  Country: None (occurrence: None)
  Receive Date: 20110303
  Receipt Date: 20110217
  Transmission Date: 20110831
  Serious: Yes (Disabling)
  Sender: FDA-Public Use
  Company Number: US-SOLVAY-00211001301

PATIENT
  Age: 19631 Day
  Sex: Male
  Weight: 95.454 kg

DRUGS (1)
  1. ANDROGEL [Suspect]
     Indication: BLOOD TESTOSTERONE DECREASED
     Dosage: DAILY DOSE: 1 DOSAGE FORM
     Route: 062
     Dates: start: 20090101

REACTIONS (4)
  - VISUAL IMPAIRMENT [None]
  - PHOTOPHOBIA [None]
  - CHEMICAL BURNS OF EYE [None]
  - ACCIDENTAL EXPOSURE [None]
